FAERS Safety Report 14513386 (Version 1)
Quarter: 2018Q1

REPORT INFORMATION
  Report Type: Spontaneous
  Country: US (occurrence: US)
  Receive Date: 20180208
  Receipt Date: 20180208
  Transmission Date: 20180509
  Serious: Yes (Hospitalization)
  Sender: FDA-Public Use
  Company Number: None

PATIENT
  Age: 36 Year
  Sex: Female
  Weight: 79.4 kg

DRUGS (1)
  1. BACTRIM DS [Suspect]
     Active Substance: SULFAMETHOXAZOLE\TRIMETHOPRIM
     Indication: CELLULITIS
     Route: 048
     Dates: start: 20171228, end: 20180105

REACTIONS (8)
  - Blood disorder [None]
  - Alanine aminotransferase increased [None]
  - Malaise [None]
  - Drug hypersensitivity [None]
  - Aplastic anaemia [None]
  - Aspartate aminotransferase increased [None]
  - Thrombocytopenia [None]
  - Agranulocytosis [None]

NARRATIVE: CASE EVENT DATE: 20180105
